FAERS Safety Report 15615699 (Version 1)
Quarter: 2018Q4

REPORT INFORMATION
  Report Type: Spontaneous
  Country: FR (occurrence: FR)
  Receive Date: 20181114
  Receipt Date: 20181114
  Transmission Date: 20190205
  Serious: Yes (Other)
  Sender: FDA-Public Use
  Company Number: FR-AUROBINDO-AUR-APL-2018-052952

PATIENT
  Age: 20 Year
  Sex: Female

DRUGS (7)
  1. NADOLOL. [Suspect]
     Active Substance: NADOLOL
     Dosage: 1.3 MG/KG, BID
     Route: 065
  2. FLECAINIDE [Suspect]
     Active Substance: FLECAINIDE
     Indication: VENTRICULAR TACHYCARDIA
  3. NADOLOL. [Suspect]
     Active Substance: NADOLOL
     Indication: VENTRICULAR TACHYCARDIA
     Dosage: 0.67 MG/KG, UNK
     Route: 065
  4. FLECAINIDE [Suspect]
     Active Substance: FLECAINIDE
     Indication: VENTRICULAR ARRHYTHMIA
     Dosage: 100 MILLIGRAM, ONCE A DAY (1.67 MG/KG OR 100 MG, QD)
     Route: 065
  5. NADOLOL. [Suspect]
     Active Substance: NADOLOL
     Indication: VENTRICULAR TACHYCARDIA
     Dosage: 0.67 MILLIGRAM/KILOGRAM, TWO TIMES A DAY
     Route: 065
  6. IVABRADINE [Concomitant]
     Active Substance: IVABRADINE
     Indication: PRODUCT USED FOR UNKNOWN INDICATION
     Dosage: ()
     Route: 065
  7. NADOLOL. [Suspect]
     Active Substance: NADOLOL
     Indication: VENTRICULAR ARRHYTHMIA
     Dosage: 1.35 MILLIGRAM/KILOGRAM, TWO TIMES A DAY
     Route: 065

REACTIONS (3)
  - Drug ineffective [Unknown]
  - Fatigue [Unknown]
  - Dizziness [Unknown]
